FAERS Safety Report 6144746-6 (Version None)
Quarter: 2009Q2

REPORT INFORMATION
  Report Type: 
  Country: None (occurrence: None)
  Receive Date: 20090406
  Receipt Date: 20090331
  Transmission Date: 20091009
  Serious: Yes (Other)
  Sender: FDA-Public Use
  Company Number: US-PFIZER INC-2006065523

PATIENT
  Sex: Female

DRUGS (5)
  1. PROVERA [Suspect]
     Indication: HORMONE REPLACEMENT THERAPY
     Dosage: 10MG/2.5MG
     Route: 048
     Dates: start: 19920101, end: 19960101
  2. PROVERA [Suspect]
     Indication: MENOPAUSE
  3. ESTRACE [Suspect]
     Indication: HORMONE REPLACEMENT THERAPY
     Dosage: 1 MG, UNK
     Route: 065
     Dates: start: 19930101, end: 19970101
  4. ESTRACE [Suspect]
     Indication: MENOPAUSE
  5. ATENOLOL [Concomitant]
     Indication: HYPERTENSION
     Dosage: 50 MG, UNK
     Dates: start: 19920101

REACTIONS (1)
  - BREAST CANCER [None]
